FAERS Safety Report 6435303-2 (Version None)
Quarter: 2009Q4

REPORT INFORMATION
  Report Type: 
  Country: None (occurrence: None)
  Receive Date: 20091106
  Receipt Date: 20091026
  Transmission Date: 20100525
  Serious: Yes (Hospitalization)
  Sender: FDA-Public Use
  Company Number: 8053833

PATIENT
  Age: 33 Year
  Sex: Female
  Weight: 60 kg

DRUGS (5)
  1. PREDNISOLONE [Suspect]
     Indication: WEGENER'S GRANULOMATOSIS
     Dosage: 30 MG PO
     Route: 048
     Dates: start: 20081003
  2. METOCLOPRAMIDE [Suspect]
     Indication: DYSPEPSIA
     Dosage: 20 MG 3/D PO
     Route: 048
  3. METOCLOPRAMIDE [Suspect]
     Indication: NAUSEA
     Dosage: 20 MG 3/D PO
     Route: 048
  4. BINOVUM [Concomitant]
  5. OMEPRAZOLE [Concomitant]

REACTIONS (1)
  - DYSTONIA [None]
